FAERS Safety Report 16799483 (Version 3)
Quarter: 2020Q4

REPORT INFORMATION
  Report Type: Spontaneous
  Country: GB (occurrence: GB)
  Receive Date: 20190912
  Receipt Date: 20201023
  Transmission Date: 20210113
  Serious: Yes (Other)
  Sender: FDA-Public Use
  Company Number: GB-PFIZER INC-2019392890

PATIENT
  Age: 54 Year
  Sex: Male

DRUGS (2)
  1. GENOTROPIN [Suspect]
     Active Substance: SOMATROPIN
     Indication: GROWTH HORMONE DEFICIENCY
     Dosage: 0.25 MG, DAILY
     Route: 058
     Dates: start: 20171103
  2. GENOTROPIN [Suspect]
     Active Substance: SOMATROPIN
     Dosage: 0.3 MG, DAILY
     Route: 058

REACTIONS (5)
  - Headache [Recovering/Resolving]
  - Migraine [Unknown]
  - Brain neoplasm [Unknown]
  - Amnesia [Unknown]
  - Fatigue [Recovering/Resolving]
